FAERS Safety Report 16918027 (Version 1)
Quarter: 2019Q4

REPORT INFORMATION
  Report Type: Spontaneous
  Country: JP (occurrence: JP)
  Receive Date: 20191015
  Receipt Date: 20191015
  Transmission Date: 20200122
  Serious: Yes (Death, Other)
  Sender: FDA-Public Use
  Company Number: JP-SA-2018SA120067

PATIENT
  Age: 71 Year
  Sex: Female
  Weight: 53 kg

DRUGS (39)
  1. ELPLAT [Suspect]
     Active Substance: OXALIPLATIN
     Dosage: 85 MG/M2, QD
     Route: 041
     Dates: start: 20170911, end: 20170911
  2. CALCIUM LEVOFOLINATE [Suspect]
     Active Substance: LEVOLEUCOVORIN CALCIUM
     Indication: COLON CANCER
     Dosage: 200 MG/M2, QD
     Route: 041
     Dates: start: 20170619, end: 20170619
  3. CALCIUM LEVOFOLINATE [Suspect]
     Active Substance: LEVOLEUCOVORIN CALCIUM
     Dosage: 200 MG/M2, QD
     Route: 041
     Dates: start: 20171110, end: 20171110
  4. CONSTAN [ALPRAZOLAM] [Concomitant]
     Active Substance: ALPRAZOLAM
  5. SULPIRIDE [Concomitant]
     Active Substance: SULPIRIDE
  6. REFLEX [Concomitant]
     Active Substance: MIRTAZAPINE
  7. ELPLAT [Suspect]
     Active Substance: OXALIPLATIN
     Dosage: 85 MG/M2, QD
     Route: 041
     Dates: start: 20170703, end: 20170703
  8. ELPLAT [Suspect]
     Active Substance: OXALIPLATIN
     Dosage: 53.6 MG/M2, QD
     Route: 041
     Dates: start: 20171214, end: 20171214
  9. ELPLAT [Suspect]
     Active Substance: OXALIPLATIN
     Dosage: 53.6 MG/M2, QD
     Route: 041
     Dates: start: 20180123, end: 20180123
  10. CALCIUM LEVOFOLINATE [Suspect]
     Active Substance: LEVOLEUCOVORIN CALCIUM
     Dosage: 200 MG/M2, QD
     Route: 041
     Dates: start: 20171214, end: 20171214
  11. CALCIUM LEVOFOLINATE [Suspect]
     Active Substance: LEVOLEUCOVORIN CALCIUM
     Dosage: 200 MG/M2, QD
     Route: 041
     Dates: start: 20180209, end: 20180209
  12. 5-FU [FLUOROURACIL] [Concomitant]
     Active Substance: FLUOROURACIL
     Dosage: UNK UNK,UNK
     Route: 065
     Dates: start: 20170619, end: 20180210
  13. SODIUM RABEPRAZOLE [Concomitant]
     Active Substance: RABEPRAZOLE SODIUM
  14. ELPLAT [Suspect]
     Active Substance: OXALIPLATIN
     Indication: COLON CANCER
     Dosage: 85 MG/M2, QD
     Route: 041
     Dates: start: 20170619, end: 20170619
  15. ELPLAT [Suspect]
     Active Substance: OXALIPLATIN
     Dosage: 53.6 MG/M2, QD
     Route: 041
     Dates: start: 20171006, end: 20171006
  16. ELPLAT [Suspect]
     Active Substance: OXALIPLATIN
     Dosage: 53.6 MG/M2, QD
     Route: 041
     Dates: start: 20171110, end: 20171110
  17. CALCIUM LEVOFOLINATE [Suspect]
     Active Substance: LEVOLEUCOVORIN CALCIUM
     Dosage: 200 MG/M2, QD
     Route: 041
     Dates: start: 20171006, end: 20171006
  18. ELPLAT [Suspect]
     Active Substance: OXALIPLATIN
     Dosage: 85 MG/M2, QD
     Route: 041
     Dates: start: 20170821, end: 20170821
  19. CALCIUM LEVOFOLINATE [Suspect]
     Active Substance: LEVOLEUCOVORIN CALCIUM
     Dosage: 200 MG/M2, QD
     Route: 041
     Dates: start: 20170703, end: 20170703
  20. CALCIUM LEVOFOLINATE [Suspect]
     Active Substance: LEVOLEUCOVORIN CALCIUM
     Dosage: 200 MG/M2, QD
     Route: 041
     Dates: start: 20180123, end: 20180123
  21. GRANISETRON [GRANISETRON HYDROCHLORIDE] [Concomitant]
     Active Substance: GRANISETRON HYDROCHLORIDE
     Dosage: UNK
     Dates: start: 20170619, end: 20180209
  22. DECADRON [DEXAMETHASONE SODIUM PHOSPHATE] [Concomitant]
     Dosage: UNK
     Dates: start: 20170619, end: 20180209
  23. ZOLPIDEM TARTRATE. [Concomitant]
     Active Substance: ZOLPIDEM TARTRATE
  24. THYRADIN S [Concomitant]
     Active Substance: LEVOTHYROXINE SODIUM
  25. ELPLAT [Suspect]
     Active Substance: OXALIPLATIN
     Dosage: 53.6 MG/M2, QD
     Route: 041
     Dates: start: 20171127, end: 20171127
  26. CALCIUM LEVOFOLINATE [Suspect]
     Active Substance: LEVOLEUCOVORIN CALCIUM
     Dosage: 200 MG/M2, QD
     Route: 041
     Dates: start: 20170821, end: 20170821
  27. MAGMITT [Concomitant]
     Active Substance: MAGNESIUM OXIDE
  28. CALCIUM LEVOFOLINATE [Suspect]
     Active Substance: LEVOLEUCOVORIN CALCIUM
     Dosage: 200 MG/M2, QD
     Route: 041
     Dates: start: 20170724, end: 20170724
  29. CALCIUM LEVOFOLINATE [Suspect]
     Active Substance: LEVOLEUCOVORIN CALCIUM
     Dosage: 200 MG/M2, QD
     Route: 041
     Dates: start: 20171127, end: 20171127
  30. NEUTROGIN [Concomitant]
     Active Substance: LENOGRASTIM
     Dosage: UNK
     Dates: start: 20171002
  31. LEXAPRO [Concomitant]
     Active Substance: ESCITALOPRAM OXALATE
  32. ELPLAT [Suspect]
     Active Substance: OXALIPLATIN
     Dosage: 85 MG/M2, QD
     Route: 041
     Dates: start: 20170724, end: 20170724
  33. ELPLAT [Suspect]
     Active Substance: OXALIPLATIN
     Dosage: 85 MG/M2, QD
     Route: 041
     Dates: start: 20170807, end: 20170807
  34. ELPLAT [Suspect]
     Active Substance: OXALIPLATIN
     Dosage: 53.6 MG/M2, QD
     Route: 041
     Dates: start: 20180104, end: 20180104
  35. ELPLAT [Suspect]
     Active Substance: OXALIPLATIN
     Dosage: 53.6 MG/M2, QD
     Route: 041
     Dates: start: 20180209, end: 20180209
  36. CALCIUM LEVOFOLINATE [Suspect]
     Active Substance: LEVOLEUCOVORIN CALCIUM
     Dosage: 200 MG/M2, QD
     Route: 041
     Dates: start: 20170807, end: 20170807
  37. CALCIUM LEVOFOLINATE [Suspect]
     Active Substance: LEVOLEUCOVORIN CALCIUM
     Dosage: 200 MG/M2, QD
     Route: 041
     Dates: start: 20170911, end: 20170911
  38. CALCIUM LEVOFOLINATE [Suspect]
     Active Substance: LEVOLEUCOVORIN CALCIUM
     Dosage: 200 MG/M2, QD
     Route: 041
     Dates: start: 20180104, end: 20180104
  39. VALSARTAN. [Concomitant]
     Active Substance: VALSARTAN

REACTIONS (3)
  - Neutrophil count decreased [Unknown]
  - Oesophageal varices haemorrhage [Fatal]
  - Hypoxic-ischaemic encephalopathy [Unknown]

NARRATIVE: CASE EVENT DATE: 20180217
